FAERS Safety Report 6708920-X (Version None)
Quarter: 2010Q2

REPORT INFORMATION
  Report Type: 
  Country: None (occurrence: None)
  Receive Date: 20100504
  Receipt Date: 20100423
  Transmission Date: 20101027
  Serious: Yes (Life-Threatening, Hospitalization)
  Sender: FDA-Public Use
  Company Number: DE-TEVA-187753ISR

PATIENT
  Age: 77 Year
  Sex: Female
  Weight: 95 kg

DRUGS (4)
  1. METFORMIN HCL [Interacting]
     Indication: TYPE 2 DIABETES MELLITUS
     Route: 048
     Dates: start: 19950101
  2. FUROSEMIDE [Suspect]
     Indication: RENAL IMPAIRMENT
     Route: 048
     Dates: start: 20020101, end: 20080808
  3. XIPAMIDE [Interacting]
     Indication: HYPERTENSION
     Route: 048
     Dates: start: 20000101
  4. GLIBENCLAMIDE [Suspect]
     Indication: TYPE 2 DIABETES MELLITUS
     Route: 048
     Dates: start: 20000101, end: 20080727

REACTIONS (2)
  - HYPOGLYCAEMIA [None]
  - RENAL FAILURE ACUTE [None]
